FAERS Safety Report 7707746-8 (Version None)
Quarter: 2011Q3

REPORT INFORMATION
  Report Type: 
  Country: None (occurrence: None)
  Receive Date: 20110824
  Receipt Date: 20110810
  Transmission Date: 20111222
  Serious: Yes (Other)
  Sender: FDA-Public Use
  Company Number: GB-ARROW GEN-2011-12678

PATIENT
  Sex: Female
  Weight: 70 kg

DRUGS (17)
  1. BISOPROLOL FUMARATE [Concomitant]
     Indication: PRODUCT USED FOR UNKNOWN INDICATION
     Dosage: UNK
     Dates: start: 20110720
  2. ALENDRONATE SODIUM [Suspect]
     Indication: PRODUCT USED FOR UNKNOWN INDICATION
     Dosage: 70 MG, UNKNOWN
     Route: 065
  3. ACETAMINOPHEN AND CODEINE PHOSPHATE [Concomitant]
     Indication: PRODUCT USED FOR UNKNOWN INDICATION
     Dosage: UNK
     Dates: start: 20110720
  4. NITROGLYCERIN [Concomitant]
     Indication: PRODUCT USED FOR UNKNOWN INDICATION
     Dosage: UNK
     Dates: start: 20110222
  5. LACTULOSE [Concomitant]
     Indication: PRODUCT USED FOR UNKNOWN INDICATION
     Dosage: 15 ML, BID
     Dates: start: 20101028
  6. VALSARTAN [Concomitant]
     Indication: PRODUCT USED FOR UNKNOWN INDICATION
     Dosage: 40 MG, UNKNOWN
  7. AIROMIR                            /00139501/ [Concomitant]
     Dosage: 5 MG, UNKNOWN
     Dates: start: 20110720
  8. AIROMIR                            /00139501/ [Concomitant]
     Dosage: 1 MG, UNKNOWN
  9. SPIRONOLACTONE [Concomitant]
     Indication: PRODUCT USED FOR UNKNOWN INDICATION
     Dosage: 25 MG, UNKNOWN
     Dates: start: 20110720
  10. FEMARA [Suspect]
     Indication: BREAST CANCER
     Dosage: 2.5 MG, UNKNOWN
     Route: 048
     Dates: start: 20100416
  11. FUROSEMIDE [Concomitant]
     Indication: PRODUCT USED FOR UNKNOWN INDICATION
     Dosage: UNK
     Dates: start: 20110720
  12. PRAVASTATIN [Concomitant]
     Indication: PRODUCT USED FOR UNKNOWN INDICATION
     Dosage: 40 MG, DAILY
  13. ADCAL-D3 [Concomitant]
     Indication: PRODUCT USED FOR UNKNOWN INDICATION
     Dosage: UNK
     Dates: start: 20110621
  14. AIROMIR                            /00139501/ [Concomitant]
     Indication: PRODUCT USED FOR UNKNOWN INDICATION
     Dosage: 3 MG, UNKNOWN
     Dates: start: 20100309
  15. DIGOXIN [Concomitant]
     Indication: PRODUCT USED FOR UNKNOWN INDICATION
     Dosage: 125 UG, UNKNOWN
     Dates: start: 20110720
  16. NOVOMIX                            /01475801/ [Concomitant]
     Indication: PRODUCT USED FOR UNKNOWN INDICATION
     Dosage: UNK
     Dates: start: 20110720
  17. WARFARIN SODIUM [Concomitant]
     Indication: PRODUCT USED FOR UNKNOWN INDICATION
     Dosage: UNK
     Dates: start: 20100309

REACTIONS (12)
  - NIGHT SWEATS [None]
  - BLEPHARITIS [None]
  - IRRITABILITY [None]
  - MUSCULOSKELETAL PAIN [None]
  - ARTHRALGIA [None]
  - DIABETES MELLITUS [None]
  - CARDIAC FAILURE [None]
  - LIVER DISORDER [None]
  - RENAL DISORDER [None]
  - OEDEMA PERIPHERAL [None]
  - AMNESIA [None]
  - MACULAR DEGENERATION [None]
